FAERS Safety Report 9595338 (Version 1)
Quarter: 2013Q4

REPORT INFORMATION
  Report Type: Spontaneous
  Country: US (occurrence: US)
  Receive Date: 20131004
  Receipt Date: 20131004
  Transmission Date: 20140711
  Serious: No
  Sender: FDA-Public Use
  Company Number: US-PFIZER INC-2013285302

PATIENT
  Sex: Male

DRUGS (3)
  1. CHANTIX [Suspect]
     Dosage: UNK
     Dates: start: 201309
  2. SUBOXONE [Suspect]
     Dosage: 8 MG, UNK
  3. SEROQUEL [Suspect]
     Dosage: 300 MG, UNK

REACTIONS (1)
  - Dizziness [Unknown]
